FAERS Safety Report 20323126 (Version 1)
Quarter: 2022Q1

REPORT INFORMATION
  Report Type: Spontaneous
  Country: US (occurrence: US)
  Receive Date: 20220111
  Receipt Date: 20220111
  Transmission Date: 20220423
  Serious: No
  Sender: FDA-Public Use
  Company Number: US-NOVOPROD-833262

PATIENT
  Age: 57 Year
  Sex: Male

DRUGS (4)
  1. RYBELSUS [Suspect]
     Active Substance: SEMAGLUTIDE
     Indication: Diabetic nephropathy
     Dosage: 3 MG
     Route: 048
     Dates: start: 202104
  2. RYBELSUS [Suspect]
     Active Substance: SEMAGLUTIDE
     Dosage: UNK
  3. RYBELSUS [Suspect]
     Active Substance: SEMAGLUTIDE
     Dosage: UNK
  4. RYBELSUS [Suspect]
     Active Substance: SEMAGLUTIDE
     Indication: Chronic kidney disease
     Dosage: UNK

REACTIONS (1)
  - Product after taste [Not Recovered/Not Resolved]

NARRATIVE: CASE EVENT DATE: 20210401
